FAERS Safety Report 5994806-5 (Version None)
Quarter: 2008Q4

REPORT INFORMATION
  Report Type: 
  Country: None (occurrence: None)
  Receive Date: 20081212
  Receipt Date: 20080915
  Transmission Date: 20090506
  Serious: Yes (Hospitalization)
  Sender: FDA-Public Use
  Company Number: US-ABBOTT-08P-163-0476409-00

PATIENT
  Sex: Female
  Weight: 63.56 kg

DRUGS (11)
  1. HUMIRA [Suspect]
     Indication: RHEUMATOID ARTHRITIS
     Route: 058
     Dates: start: 20050101, end: 20060901
  2. HUMIRA [Suspect]
     Route: 058
     Dates: start: 20060901, end: 20070601
  3. HUMIRA [Suspect]
     Route: 058
     Dates: start: 20070901
  4. CARVEDILOL [Concomitant]
     Indication: HEART RATE INCREASED
     Route: 048
     Dates: start: 20070801
  5. RALOXIFENE HCL [Concomitant]
     Indication: MINERAL SUPPLEMENTATION
     Route: 048
  6. ESOMEPRAZOLE MAGNESIUM [Concomitant]
     Indication: GASTROOESOPHAGEAL REFLUX DISEASE
     Route: 048
     Dates: start: 20080601
  7. LEVOTHYROXINE SODIUM [Concomitant]
     Indication: HYPOTHYROIDISM
     Route: 048
  8. ACETYLSALICYLIC ACID SRT [Concomitant]
     Indication: CARDIOVASCULAR EVENT PROPHYLAXIS
     Route: 048
     Dates: start: 20070801
  9. FUROSEMIDE [Concomitant]
     Indication: CARDIAC DISORDER
     Route: 048
     Dates: start: 20070801
  10. POTASSIUM CHLORIDE [Concomitant]
     Indication: CARDIAC DISORDER
     Route: 048
     Dates: start: 20070801
  11. INEGY [Concomitant]
     Indication: BLOOD CHOLESTEROL INCREASED
     Route: 048
     Dates: start: 20070901

REACTIONS (8)
  - COUGH [None]
  - DRUG INEFFECTIVE [None]
  - HEART RATE INCREASED [None]
  - JOINT SWELLING [None]
  - PAIN [None]
  - PANCREATITIS [None]
  - RETCHING [None]
  - SINUS CONGESTION [None]
